FAERS Safety Report 7021945-2 (Version None)
Quarter: 2010Q3

REPORT INFORMATION
  Report Type: 
  Country: None (occurrence: None)
  Receive Date: 20100930
  Receipt Date: 20100323
  Transmission Date: 20110219
  Serious: Yes (Hospitalization)
  Sender: FDA-Public Use
  Company Number: US-BAYER-200942901NA

PATIENT
  Age: 47 Year
  Sex: Female
  Weight: 72 kg

DRUGS (6)
  1. YAZ [Suspect]
     Indication: MENSTRUAL DISORDER
     Route: 048
     Dates: start: 20070625, end: 20080123
  2. ANTIBIOTICS [Concomitant]
     Dates: start: 20000101
  3. NONSTEROIDAL ANTI-INFLAMMATORY DRUGS [Concomitant]
     Dates: start: 20000101
  4. ZYRTEC [Concomitant]
     Dates: start: 20081101
  5. BENADRYL [Concomitant]
     Dates: start: 20081101
  6. ZOCOR [Concomitant]
     Dates: start: 20081101

REACTIONS (12)
  - ABDOMINAL PAIN UPPER [None]
  - BILIARY COLIC [None]
  - BILIARY DYSKINESIA [None]
  - CEREBRAL ISCHAEMIA [None]
  - CEREBROVASCULAR ACCIDENT [None]
  - CHOLECYSTITIS CHRONIC [None]
  - FACIAL PAIN [None]
  - HEADACHE [None]
  - HYPOAESTHESIA [None]
  - NAUSEA [None]
  - VERTEBRAL ARTERY OCCLUSION [None]
  - VOMITING [None]
